FAERS Safety Report 14790277 (Version 1)
Quarter: 2018Q2

REPORT INFORMATION
  Report Type: Report from Study
  Country: None (occurrence: US)
  Receive Date: 20180423
  Receipt Date: 20180423
  Transmission Date: 20180711
  Serious: Yes (Other)
  Sender: FDA-Public Use
  Company Number: US-ABBVIE-18K-163-2328112-00

PATIENT
  Age: 45 Year
  Sex: Male
  Weight: 70.82 kg

DRUGS (5)
  1. HUMIRA [Suspect]
     Active Substance: ADALIMUMAB
     Indication: ANKYLOSING SPONDYLITIS
     Route: 058
     Dates: end: 2016
  2. ATENOLOL. [Concomitant]
     Active Substance: ATENOLOL
     Indication: HYPERTENSION
  3. ENBREL [Suspect]
     Active Substance: ETANERCEPT
     Indication: ANKYLOSING SPONDYLITIS
     Route: 065
     Dates: start: 2017, end: 201801
  4. HUMIRA [Suspect]
     Active Substance: ADALIMUMAB
     Route: 058
  5. ALPRAZOLAM. [Concomitant]
     Active Substance: ALPRAZOLAM
     Indication: ANXIETY

REACTIONS (21)
  - Weight decreased [Not Recovered/Not Resolved]
  - Colitis [Unknown]
  - Clostridium difficile infection [Recovered/Resolved]
  - Thoracic spinal stenosis [Unknown]
  - Speech disorder [Recovering/Resolving]
  - Vitreous floaters [Recovered/Resolved]
  - Optic nerve injury [Not Recovered/Not Resolved]
  - Haematochezia [Recovered/Resolved]
  - Joint swelling [Not Recovered/Not Resolved]
  - Malaise [Unknown]
  - Blood potassium decreased [Not Recovered/Not Resolved]
  - Mucous stools [Recovered/Resolved]
  - Varicocele [Recovering/Resolving]
  - Visual impairment [Recovered/Resolved]
  - Diarrhoea [Recovered/Resolved]
  - Cervical spinal stenosis [Not Recovered/Not Resolved]
  - Red blood cell sedimentation rate increased [Not Recovered/Not Resolved]
  - Intervertebral disc protrusion [Unknown]
  - Vitreous floaters [Recovered/Resolved]
  - C-reactive protein increased [Not Recovered/Not Resolved]
  - Tremor [Recovered/Resolved]

NARRATIVE: CASE EVENT DATE: 2016
